FAERS Safety Report 9962711 (Version 1)
Quarter: 2014Q1

REPORT INFORMATION
  Report Type: Report from Study
  Country: PR (occurrence: PR)
  Receive Date: 20140305
  Receipt Date: 20140305
  Transmission Date: 20141002
  Serious: No
  Sender: FDA-Public Use
  Company Number: PR-ABBVIE-13P-131-1119507-00

PATIENT
  Age: 66 Year
  Sex: Female
  Weight: 54.48 kg

DRUGS (14)
  1. HUMIRA [Suspect]
     Indication: RHEUMATOID ARTHRITIS
     Route: 058
     Dates: start: 2007
  2. SYNTHROID [Concomitant]
     Indication: PRODUCT USED FOR UNKNOWN INDICATION
     Route: 048
  3. PANTOPRAZOLE [Concomitant]
     Indication: GASTROOESOPHAGEAL REFLUX DISEASE
     Route: 048
  4. NEURONTIN [Concomitant]
     Indication: FACIAL PAIN
  5. BYSTOLIC [Concomitant]
     Indication: HYPERTENSION
     Route: 048
  6. CLONAZEPAM [Concomitant]
     Indication: FACIAL NERVE DISORDER
     Route: 048
  7. FOLIC ACID [Concomitant]
     Indication: VITAMIN SUPPLEMENTATION
  8. TRAMADOL + ACETAMINOFEN MK [Concomitant]
     Indication: PRODUCT USED FOR UNKNOWN INDICATION
     Route: 048
  9. TRAVATAN [Concomitant]
     Indication: GLAUCOMA
     Dosage: 1 DROP EACH EYE
  10. CENTRUM SILVER [Concomitant]
     Indication: VITAMIN SUPPLEMENTATION
     Route: 048
  11. CALTRATE + D [Concomitant]
     Indication: MINERAL SUPPLEMENTATION
     Route: 048
  12. MAXIMUM D3 [Concomitant]
     Indication: VITAMIN SUPPLEMENTATION
     Route: 048
  13. OMEGA 3 [Concomitant]
     Indication: NUTRITIONAL SUPPLEMENTATION
  14. METOPROLOL [Concomitant]
     Indication: HYPERTENSION
     Route: 048

REACTIONS (1)
  - Constipation [Recovered/Resolved]
